FAERS Safety Report 19995904 (Version 5)
Quarter: 2023Q2

REPORT INFORMATION
  Report Type: Spontaneous
  Country: JP (occurrence: JP)
  Receive Date: 20211026
  Receipt Date: 20230626
  Transmission Date: 20230721
  Serious: Yes (Death, Hospitalization, Disabling, Other)
  Sender: FDA-Public Use
  Company Number: JP-MSD-M2021-24835

PATIENT
  Sex: Male
  Weight: 50 kg

DRUGS (22)
  1. KEYTRUDA [Suspect]
     Active Substance: PEMBROLIZUMAB
     Indication: Non-small cell lung cancer stage IV
     Dosage: 200 MILLIGRAM, EVERY 4 WEEKS
     Route: 041
     Dates: start: 20210127, end: 20210323
  2. KEYTRUDA [Suspect]
     Active Substance: PEMBROLIZUMAB
     Dosage: 200 MILLIGRAM, Q3W
     Route: 041
     Dates: start: 20210602, end: 20210623
  3. ABRAXANE [Suspect]
     Active Substance: PACLITAXEL
     Indication: Non-small cell lung cancer stage IV
     Dosage: 120 MILLIGRAM, EVERY 4 WEEKS
     Route: 041
     Dates: start: 20210127, end: 20210324
  4. CARBOPLATIN [Concomitant]
     Active Substance: CARBOPLATIN
     Indication: Non-small cell lung cancer stage IV
     Dosage: 450 MILLIGRAM, EVERY 4 WEEKS
     Route: 041
     Dates: start: 20210127, end: 20210324
  5. VILDAGLIPTIN [Concomitant]
     Active Substance: VILDAGLIPTIN
     Indication: Diabetes mellitus
     Dosage: UNK
     Route: 065
     Dates: end: 201606
  6. VILDAGLIPTIN [Concomitant]
     Active Substance: VILDAGLIPTIN
     Dosage: 100 MILLIGRAM
     Route: 048
     Dates: start: 20210126, end: 20210921
  7. ACTOS [Concomitant]
     Active Substance: PIOGLITAZONE HYDROCHLORIDE
     Indication: Diabetes mellitus
     Dosage: 30 MILLIGRAM
     Route: 048
     Dates: start: 20210126, end: 20210921
  8. IPRAGLIFLOZIN L-PROLINE [Concomitant]
     Active Substance: IPRAGLIFLOZIN L-PROLINE
     Indication: Diabetes mellitus
     Dosage: 50 MILLIGRAM
     Route: 048
     Dates: start: 20210126
  9. LUNESTA [Concomitant]
     Active Substance: ESZOPICLONE
     Indication: Insomnia
     Dosage: 1 MILLIGRAM
     Route: 048
     Dates: start: 20210126, end: 20211002
  10. CODEINE PHOSPHATE [Concomitant]
     Active Substance: CODEINE PHOSPHATE
     Indication: Cough
     Dosage: 15 MILLIGRAM
     Route: 048
     Dates: start: 20210126, end: 20210209
  11. MAGNESIUM OXIDE [Concomitant]
     Active Substance: MAGNESIUM OXIDE
     Indication: Constipation
     Dosage: 990 MILLIGRAM
     Route: 048
     Dates: start: 20210126, end: 20210209
  12. VONOPRAZAN FUMARATE [Concomitant]
     Active Substance: VONOPRAZAN FUMARATE
     Indication: Gastrooesophageal reflux disease
     Dosage: 10 MILLIGRAM
     Route: 048
     Dates: start: 20210126, end: 20210713
  13. VONOPRAZAN FUMARATE [Concomitant]
     Active Substance: VONOPRAZAN FUMARATE
     Dosage: 10 MILLIGRAM
     Route: 048
     Dates: start: 20210922, end: 20211006
  14. SULPIRIDE [Concomitant]
     Active Substance: SULPIRIDE
     Indication: Gastritis
     Dosage: 100 MILLIGRAM
     Route: 048
     Dates: start: 20210126, end: 20210209
  15. REBAMIPIDE [Concomitant]
     Active Substance: REBAMIPIDE
     Indication: Gastritis
     Dosage: 300 MILLIGRAM
     Route: 048
     Dates: start: 20210126, end: 20210422
  16. STROCAIN [OXETACAINE] [Concomitant]
     Indication: Gastritis
     Dosage: 15 MILLIGRAM
     Route: 048
     Dates: start: 20210126, end: 20210323
  17. LORNOXICAM [Concomitant]
     Active Substance: LORNOXICAM
     Indication: Osteoarthritis
     Dosage: 12 MILLIGRAM
     Route: 048
     Dates: start: 20210126, end: 20210421
  18. CHLORPHENESIN CARBAMATE [Concomitant]
     Active Substance: CHLORPHENESIN CARBAMATE
     Indication: Spinal osteoarthritis
     Dosage: 750 MILLIGRAM
     Route: 048
     Dates: start: 20210126, end: 20210407
  19. URSO [Concomitant]
     Active Substance: URSODIOL
     Indication: Liver disorder
     Dosage: UNK
     Route: 065
     Dates: start: 20160301, end: 201702
  20. URSO [Concomitant]
     Active Substance: URSODIOL
     Indication: Cholestasis
     Dosage: UNK
     Route: 065
     Dates: start: 201710
  21. URSO [Concomitant]
     Active Substance: URSODIOL
     Dosage: 300 MILLIGRAM
     Route: 048
     Dates: start: 20210126, end: 20210407
  22. URSO [Concomitant]
     Active Substance: URSODIOL
     Dosage: 600 MILLIGRAM
     Route: 048
     Dates: start: 20210922, end: 20211006

REACTIONS (11)
  - Cholangitis sclerosing [Fatal]
  - Ureteric stenosis [Recovered/Resolved]
  - Tubulointerstitial nephritis [Recovered/Resolved]
  - Malignant pleural effusion [Not Recovered/Not Resolved]
  - Rhinitis allergic [Recovered/Resolved]
  - Neuralgia [Unknown]
  - Hypoaesthesia [Recovering/Resolving]
  - Diarrhoea [Recovered/Resolved]
  - Pain [Unknown]
  - Spinal osteoarthritis [Not Recovered/Not Resolved]
  - Off label use [Unknown]

NARRATIVE: CASE EVENT DATE: 20210101
